FAERS Safety Report 15774967 (Version 1)
Quarter: 2018Q4

REPORT INFORMATION
  Report Type: Spontaneous
  Country: FR (occurrence: FR)
  Receive Date: 20181230
  Receipt Date: 20181230
  Transmission Date: 20190205
  Serious: Yes (Other)
  Sender: FDA-Public Use
  Company Number: FR-PROVELL PHARMACEUTICALS-2060694

PATIENT
  Age: 65 Year
  Sex: Female

DRUGS (1)
  1. EUTHYROX [Suspect]
     Active Substance: LEVOTHYROXINE SODIUM
     Indication: PRODUCT USED FOR UNKNOWN INDICATION

REACTIONS (7)
  - Fatigue [None]
  - Tremor [None]
  - Headache [None]
  - Hypokalaemia [None]
  - Myalgia [None]
  - Anxiety [None]
  - Dysstasia [None]

NARRATIVE: CASE EVENT DATE: 201808
